FAERS Safety Report 8771710 (Version 2)
Quarter: 2013Q4

REPORT INFORMATION
  Report Type: Spontaneous
  Country: US (occurrence: US)
  Receive Date: 20120905
  Receipt Date: 20131101
  Transmission Date: 20140711
  Serious: No
  Sender: FDA-Public Use
  Company Number: US-009507513-1208USA010585

PATIENT
  Age: 23 Month
  Sex: Female

DRUGS (1)
  1. MIRALAX [Suspect]
     Indication: FAECES HARD
     Dosage: UNK, UNKNOWN
     Route: 048

REACTIONS (2)
  - Drug administered to patient of inappropriate age [Unknown]
  - Off label use [Unknown]
